FAERS Safety Report 5856873-9 (Version None)
Quarter: 2008Q3

REPORT INFORMATION
  Report Type: 
  Country: None (occurrence: None)
  Receive Date: 20080825
  Receipt Date: 20080813
  Transmission Date: 20090109
  Serious: Yes (Other)
  Sender: FDA-Public Use
  Company Number: US-PFIZER INC-2008068531

PATIENT
  Sex: Female
  Weight: 77.2 kg

DRUGS (4)
  1. CHANTIX [Suspect]
     Indication: SMOKING CESSATION THERAPY
  2. METHOTREXATE [Suspect]
     Indication: RHEUMATOID ARTHRITIS
  3. ETODOLAC [Concomitant]
  4. FOLIC ACID [Concomitant]

REACTIONS (3)
  - GLOSSODYNIA [None]
  - MEDICATION ERROR [None]
  - SWOLLEN TONGUE [None]
